FAERS Safety Report 4450267-9 (Version None)
Quarter: 2004Q3

REPORT INFORMATION
  Report Type: 
  Country: None (occurrence: None)
  Receive Date: 20040915
  Receipt Date: 20040831
  Transmission Date: 20050211
  Serious: Yes (Hospitalization)
  Sender: FDA-Public Use
  Company Number: USA-2004-0016457

PATIENT
  Age: 51 Year
  Sex: Male

DRUGS (29)
  1. OXYCONTIN [Suspect]
     Indication: PAIN
     Dosage: 20 MG, Q12H
     Dates: start: 20030806, end: 20030905
  2. OXYIR CAPSULES 5MG (OXYCODONE HYDROCHLORIDE, (OXYCODONE HYDROCHLORIDE) [Suspect]
     Dosage: 5 MG, Q4H
     Dates: start: 20030901
  3. ARANESP [Suspect]
  4. KYTRIL [Suspect]
     Dosage: 1 MG, INTRAVENOUS
     Route: 042
  5. PROGRAF [Suspect]
     Dosage: SEE IMAGE
     Dates: start: 20030103
  6. PROGRAF [Suspect]
     Dosage: SEE IMAGE
     Dates: start: 20030103
  7. PROTONIL (PANTOPRAZOLE) [Suspect]
     Dosage: 40 MG DAILY
     Dates: start: 20030910
  8. ASPIRIN [Suspect]
     Dosage: 81 MG, DAILY
  9. GABAPENTIN [Suspect]
  10. MAGNESIUM (MAGNESIUM) [Suspect]
     Dosage: 400 MG
     Dates: start: 20030103
  11. SENOKOT [Suspect]
  12. DONEPEZIL (DONEPEZIL) [Suspect]
  13. INDERAL [Suspect]
  14. DRONABINOL (DRONABINOL) [Suspect]
  15. MEGACE [Suspect]
  16. INSULIN [Suspect]
  17. ALDACTONE [Suspect]
  18. AMBIEN [Suspect]
  19. CHLORPROMAZINE [Concomitant]
  20. GLIPIZIDE [Concomitant]
  21. PROCARDIA [Concomitant]
  22. PENTAMIDINE (PENTAMIDINE) [Concomitant]
  23. PERI-COLACE (SENNOSIDE A+B, DOCUSATE SODIUM) [Concomitant]
  24. DULCOLAX [Concomitant]
  25. DEXAMETHASONE [Concomitant]
  26. CISPLATIN [Concomitant]
  27. ZOLOFT [Concomitant]
  28. LEUKINE [Concomitant]
  29. ADRIAMYCIN PFS [Concomitant]

REACTIONS (15)
  - ASTHENIA [None]
  - BLOOD GLUCOSE INCREASED [None]
  - BLOOD MAGNESIUM DECREASED [None]
  - BLOOD SODIUM DECREASED [None]
  - CONFUSIONAL STATE [None]
  - CONTUSION [None]
  - CONVULSION [None]
  - FACE INJURY [None]
  - FALL [None]
  - FATIGUE [None]
  - MENTAL STATUS CHANGES [None]
  - NAUSEA [None]
  - PANCYTOPENIA [None]
  - SWELLING [None]
  - VOMITING [None]
